FAERS Safety Report 7078960-2 (Version None)
Quarter: 2010Q4

REPORT INFORMATION
  Report Type: 
  Country: None (occurrence: None)
  Receive Date: 20101102
  Receipt Date: 20101101
  Transmission Date: 20110411
  Serious: Yes (Other)
  Sender: FDA-Public Use
  Company Number: HQWYE136210AUG04

PATIENT
  Sex: Female

DRUGS (6)
  1. PREMPRO [Suspect]
  2. MEDROXYPROGESTERONE ACETATE [Suspect]
  3. ESTROGENS [Suspect]
  4. CYCRIN [Suspect]
  5. CONJUGATED ESTROGENS [Suspect]
  6. PROVERA [Suspect]

REACTIONS (1)
  - BREAST CANCER METASTATIC [None]
